FAERS Safety Report 7964744-7 (Version None)
Quarter: 2011Q4

REPORT INFORMATION
  Report Type: 
  Country: None (occurrence: None)
  Receive Date: 20111206
  Receipt Date: 20111206
  Transmission Date: 20120403
  Serious: Yes (Death)
  Sender: FDA-Public Use
  Company Number: None

PATIENT
  Sex: Female
  Weight: 61.7 kg

DRUGS (3)
  1. FLUOROURACIL [Suspect]
     Dosage: 820 MG
     Dates: end: 20111121
  2. CYCLOPHOSPHAMIDE [Suspect]
     Dosage: 820 MG
     Dates: end: 20111121
  3. ELLENCE [Suspect]
     Dosage: 123 MG
     Dates: end: 20111121

REACTIONS (1)
  - DEATH [None]
